FAERS Safety Report 7488672-9 (Version None)
Quarter: 2011Q2

REPORT INFORMATION
  Report Type: 
  Country: None (occurrence: None)
  Receive Date: 20110518
  Receipt Date: 20110509
  Transmission Date: 20111010
  Serious: Yes (Death)
  Sender: FDA-Public Use
  Company Number: B0713500A

PATIENT
  Sex: Male
  Weight: 75 kg

DRUGS (6)
  1. ZANAMIVIR [Suspect]
     Dosage: 600MG TWICE PER DAY
     Route: 042
     Dates: start: 20110128
  2. IMATINIB MESYLATE [Concomitant]
     Dates: start: 20110112
  3. FRESH FROZEN PLASMA [Concomitant]
     Indication: INFLUENZA
     Dates: start: 20110127, end: 20110127
  4. TAMIFLU [Concomitant]
     Dates: start: 20110117, end: 20110117
  5. TAMIFLU [Concomitant]
     Indication: INFLUENZA
     Dates: start: 20110113, end: 20110113
  6. ZANAMIVIR [Suspect]
     Indication: H1N1 INFLUENZA
     Dosage: 10MG TWICE PER DAY
     Route: 055
     Dates: start: 20110113, end: 20110126

REACTIONS (1)
  - ACCIDENTAL OVERDOSE [None]
